FAERS Safety Report 24315760 (Version 1)
Quarter: 2024Q3

REPORT INFORMATION
  Report Type: Spontaneous
  Country: CN (occurrence: CN)
  Receive Date: 20240913
  Receipt Date: 20240913
  Transmission Date: 20241017
  Serious: Yes (Other)
  Sender: JOHNSON AND JOHNSON
  Company Number: CN-JNJFOC-20240923436

PATIENT
  Age: 7 Day
  Sex: Female
  Weight: 1.4 kg

DRUGS (3)
  1. CHILDRENS MOTRIN [Suspect]
     Active Substance: IBUPROFEN
     Indication: Patent ductus arteriosus
     Dosage: NASOGASTRIC FEEDING
     Route: 050
     Dates: start: 20240620, end: 20240620
  2. CHILDRENS MOTRIN [Suspect]
     Active Substance: IBUPROFEN
     Dosage: ROUTE- NASOGASTRIC FEEDING
     Route: 050
     Dates: start: 20240621, end: 20240622
  3. PORACTANT ALFA [Concomitant]
     Active Substance: PORACTANT ALFA
     Indication: Neonatal respiratory distress
     Dosage: ROUTE-INTRATRACHEAL/INTRABRONCHIAL ADMINISTRATION
     Route: 039
     Dates: start: 20240613, end: 20240613

REACTIONS (2)
  - Off label use [Unknown]
  - Urine output decreased [Recovered/Resolved]

NARRATIVE: CASE EVENT DATE: 20240620
